FAERS Safety Report 25270635 (Version 1)
Quarter: 2025Q2

REPORT INFORMATION
  Report Type: Spontaneous
  Country: US (occurrence: US)
  Receive Date: 20250505
  Receipt Date: 20250505
  Transmission Date: 20250717
  Serious: Yes (Other)
  Sender: BAUSCH AND LOMB
  Company Number: US-BAUSCHBL-2025BNL007455

PATIENT
  Age: 67 Year
  Sex: Female

DRUGS (4)
  1. DORZOLAMIDE AND TIMOLOL [Suspect]
     Active Substance: DORZOLAMIDE HYDROCHLORIDE\TIMOLOL MALEATE
     Indication: Intraocular pressure test
     Route: 047
  2. BRIMONIDINE [Suspect]
     Active Substance: BRIMONIDINE TARTRATE
     Indication: Intraocular pressure test
     Route: 047
  3. LATANOPROST [Suspect]
     Active Substance: LATANOPROST
     Indication: Intraocular pressure test
     Route: 047
  4. ACETAZOLAMIDE [Concomitant]
     Active Substance: ACETAZOLAMIDE
     Indication: Intraocular pressure test
     Route: 048

REACTIONS (1)
  - Drug intolerance [Unknown]
